FAERS Safety Report 4749601-1 (Version None)
Quarter: 2005Q3

REPORT INFORMATION
  Report Type: 
  Country: None (occurrence: None)
  Receive Date: 20050822
  Receipt Date: 20050628
  Transmission Date: 20060218
  Serious: Yes (Life-Threatening, Hospitalization, Other)
  Sender: FDA-Public Use
  Company Number: US-GLAXOSMITHKLINE-A0564508A

PATIENT
  Age: 78 Year
  Sex: Female

DRUGS (7)
  1. SEREVENT [Suspect]
     Indication: ASTHMA
     Route: 055
  2. FLOVENT [Concomitant]
  3. ALBUTEROL [Concomitant]
  4. TOPROL-XL [Concomitant]
  5. ATACAND [Concomitant]
  6. PLAVIX [Concomitant]
  7. NEXIUM [Concomitant]

REACTIONS (4)
  - CHEST PAIN [None]
  - HYPERHIDROSIS [None]
  - MYOCARDIAL INFARCTION [None]
  - NAUSEA [None]
